FAERS Safety Report 5036590-8 (Version None)
Quarter: 2006Q2

REPORT INFORMATION
  Report Type: 
  Country: None (occurrence: None)
  Receive Date: 20060614
  Receipt Date: 20060510
  Transmission Date: 20061013
  Serious: Yes (Other)
  Sender: FDA-Public Use
  Company Number: BDI-008234

PATIENT
  Age: 43 Year
  Sex: Female

DRUGS (2)
  1. MULTIHANCE [Suspect]
     Indication: HYPERSENSITIVITY
     Dosage: 20 ML ONCE IV
     Route: 042
     Dates: start: 20060508, end: 20060508
  2. MULTIHANCE [Suspect]
     Indication: NUCLEAR MAGNETIC RESONANCE IMAGING
     Dosage: 20 ML ONCE IV
     Route: 042
     Dates: start: 20060508, end: 20060508

REACTIONS (1)
  - HYPERSENSITIVITY [None]
